FAERS Safety Report 5589104-8 (Version None)
Quarter: 2007Q4

REPORT INFORMATION
  Report Type: 
  Country: None (occurrence: None)
  Receive Date: 20071212
  Receipt Date: 20071002
  Transmission Date: 20080405
  Serious: Yes (Death, Hospitalization, Other)
  Sender: FDA-Public Use
  Company Number: USA-2006-0026043

PATIENT
  Age: 35 Year
  Sex: Female

DRUGS (3)
  1. OXYCONTIN [Suspect]
     Indication: DRUG ABUSER
     Dosage: TID
  2. XANAX [Suspect]
     Indication: DRUG ABUSER
  3. COCAINE (COCAINE) [Suspect]
     Indication: DRUG ABUSER
     Dosage: NASAL
     Route: 045

REACTIONS (3)
  - DRUG EXPOSURE VIA BREAST MILK [None]
  - MULTIPLE DRUG OVERDOSE ACCIDENTAL [None]
  - SUBSTANCE ABUSE [None]
